FAERS Safety Report 4359413-9 (Version None)
Quarter: 2004Q2

REPORT INFORMATION
  Report Type: 
  Country: None (occurrence: None)
  Receive Date: 20040518
  Receipt Date: 20040510
  Transmission Date: 20050107
  Serious: Yes (Death, Other)
  Sender: FDA-Public Use
  Company Number: 200411607JP

PATIENT
  Age: 71 Year
  Sex: Female

DRUGS (5)
  1. KETEK [Suspect]
     Indication: PNEUMONIA
     Route: 048
     Dates: start: 20040330, end: 20040401
  2. FLUMARIN [Concomitant]
     Route: 042
     Dates: start: 20040324, end: 20040331
  3. CRAVIT [Concomitant]
     Route: 048
     Dates: start: 20040324, end: 20040327
  4. SULPERAZON [Concomitant]
     Indication: PNEUMONIA
     Route: 042
     Dates: start: 20040330, end: 20040331
  5. FLUMARIN [Concomitant]
     Indication: PNEUMONIA
     Route: 042
     Dates: end: 20040331

REACTIONS (2)
  - DRUG INEFFECTIVE [None]
  - INTERSTITIAL LUNG DISEASE [None]
